FAERS Safety Report 10068713 (Version 1)
Quarter: 2014Q2

REPORT INFORMATION
  Report Type: Spontaneous
  Country: US (occurrence: US)
  Receive Date: 20140409
  Receipt Date: 20140409
  Transmission Date: 20141212
  Serious: Yes (Hospitalization, Other)
  Sender: FDA-Public Use
  Company Number: US-ASTELLAS-2014US003576

PATIENT
  Age: 77 Year
  Sex: Female

DRUGS (1)
  1. TARCEVA [Suspect]
     Indication: LUNG NEOPLASM MALIGNANT
     Dosage: 150 MG, UID/QD
     Route: 048
     Dates: start: 20140305, end: 20140316

REACTIONS (5)
  - Hallucination [Not Recovered/Not Resolved]
  - Confusional state [Not Recovered/Not Resolved]
  - White blood cell count increased [Not Recovered/Not Resolved]
  - Infection [Not Recovered/Not Resolved]
  - Mental status changes [Not Recovered/Not Resolved]
